FAERS Safety Report 5630025-X (Version None)
Quarter: 2008Q1

REPORT INFORMATION
  Report Type: 
  Country: None (occurrence: None)
  Receive Date: 20080214
  Receipt Date: 20080206
  Transmission Date: 20080703
  Serious: Yes (Death, Other)
  Sender: FDA-Public Use
  Company Number: FACT0800026

PATIENT
  Age: 83 Year
  Sex: Male
  Weight: 70 kg

DRUGS (3)
  1. FACTIVE [Suspect]
     Indication: BRONCHITIS
     Dosage: 320 MG, QD, ORAL
     Route: 048
     Dates: start: 20080111, end: 20080112
  2. ACETAMINOPHEN [Concomitant]
  3. AMBROXOL  (AMBROXOL) [Concomitant]

REACTIONS (5)
  - HALLUCINATION [None]
  - HYPOXIA [None]
  - INCOHERENT [None]
  - LOSS OF CONSCIOUSNESS [None]
  - PNEUMONIA [None]
